FAERS Safety Report 5428796-0 (Version None)
Quarter: 2007Q3

REPORT INFORMATION
  Report Type: 
  Country: None (occurrence: None)
  Receive Date: 20070829
  Receipt Date: 20070220
  Transmission Date: 20080115
  Serious: No
  Sender: FDA-Public Use
  Company Number: A0640302A

PATIENT
  Sex: Female

DRUGS (2)
  1. ZOVIRAX [Suspect]
     Route: 061
  2. ACYCLOVIR [Concomitant]
     Route: 048

REACTIONS (5)
  - CHAPPED LIPS [None]
  - LIP PAIN [None]
  - LIP SWELLING [None]
  - OPEN WOUND [None]
  - PARAESTHESIA ORAL [None]
